FAERS Safety Report 4986133-X (Version None)
Quarter: 2006Q1

REPORT INFORMATION
  Report Type: 
  Country: None (occurrence: None)
  Receive Date: 20060309
  Receipt Date: 20050816
  Transmission Date: 20060701
  Serious: Yes (Hospitalization)
  Sender: FDA-Public Use
  Company Number: 414728

PATIENT
  Age: 22 Year
  Sex: Male

DRUGS (1)
  1. ACCUTANE [Suspect]
     Indication: DRUG USE FOR UNKNOWN INDICATION
     Dosage: ORAL
     Route: 048
     Dates: start: 20020615, end: 20030615

REACTIONS (4)
  - BLOOD AMYLASE INCREASED [None]
  - LIPASE INCREASED [None]
  - PAIN [None]
  - PANCREATITIS [None]
